FAERS Safety Report 7080566-6 (Version None)
Quarter: 2010Q4

REPORT INFORMATION
  Report Type: 
  Country: None (occurrence: None)
  Receive Date: 20101025
  Receipt Date: 20101013
  Transmission Date: 20110411
  Serious: Yes (Other)
  Sender: FDA-Public Use
  Company Number: US-1183725

PATIENT
  Age: 68 Year
  Sex: Male

DRUGS (2)
  1. VIGAMOX [Suspect]
     Dosage: OPHTHALMIC
     Route: 047
     Dates: start: 20101011
  2. KEPPRA [Concomitant]

REACTIONS (1)
  - GRAND MAL CONVULSION [None]
